FAERS Safety Report 9714531 (Version 1)
Quarter: 2013Q4

REPORT INFORMATION
  Report Type: Spontaneous
  Country: GB (occurrence: GB)
  Receive Date: 20131126
  Receipt Date: 20131126
  Transmission Date: 20140711
  Serious: Yes (Other)
  Sender: FDA-Public Use
  Company Number: GB-B.I. PHARMACEUTICALS,INC./RIDGEFIELD-2013-BI-38494UK

PATIENT
  Age: 74 Year
  Sex: Female
  Weight: 120 kg

DRUGS (7)
  1. MELOXICAM [Suspect]
     Dates: end: 20131108
  2. AMITRIPTYLINE HYDROCHORIDE [Concomitant]
     Dates: start: 20131101
  3. AMLODIPINE [Concomitant]
     Dates: start: 20130813
  4. BENDROFLUMETHIAZIDE [Concomitant]
     Dates: start: 20131009
  5. CANDESARTAN [Concomitant]
     Dates: start: 20130912
  6. CO-CODAMOL [Concomitant]
     Dates: start: 20130718
  7. LEVOTHYROXINE [Concomitant]
     Dates: start: 20130813

REACTIONS (1)
  - Wheezing [Not Recovered/Not Resolved]
